FAERS Safety Report 10039248 (Version 1)
Quarter: 2014Q1

REPORT INFORMATION
  Report Type: Spontaneous
  Country: CH (occurrence: CH)
  Receive Date: 20140326
  Receipt Date: 20140326
  Transmission Date: 20141002
  Serious: Yes (Hospitalization)
  Sender: FDA-Public Use
  Company Number: CH-ACTAVIS-2014-05388

PATIENT
  Age: 70 Year
  Sex: Female

DRUGS (9)
  1. FENTANYL (UNKNOWN) [Suspect]
     Indication: BACK PAIN
     Dosage: 25 MCG, PER 72 HOURS
     Route: 062
  2. MORPHINE (UNKNOWN) [Suspect]
     Indication: BACK PAIN
     Dosage: UNK, AS NEEDED
     Route: 048
  3. CARBOPLATIN (UNKNOWN) [Suspect]
     Indication: BLADDER CANCER
     Dosage: UNK
     Route: 048
     Dates: start: 20130115
  4. GEMZAR [Suspect]
     Indication: BLADDER CANCER
     Dosage: UNK
     Route: 065
     Dates: start: 20130115
  5. NOVALGIN                           /06276704/ [Concomitant]
     Indication: PRODUCT USED FOR UNKNOWN INDICATION
     Dosage: UNK
     Route: 065
  6. PANTOZOL                           /01263204/ [Concomitant]
     Indication: PRODUCT USED FOR UNKNOWN INDICATION
     Dosage: UNK
     Route: 065
  7. RAMIPRIL [Concomitant]
     Indication: PRODUCT USED FOR UNKNOWN INDICATION
     Dosage: UNK
     Route: 065
  8. IBUPROFEN [Concomitant]
     Indication: PRODUCT USED FOR UNKNOWN INDICATION
     Dosage: UNK
     Route: 065
  9. MOTILIUM                           /00498201/ [Concomitant]
     Indication: PRODUCT USED FOR UNKNOWN INDICATION
     Dosage: UNK, AS NEEDED
     Route: 065

REACTIONS (3)
  - Constipation [Recovered/Resolved]
  - Abdominal pain upper [Recovered/Resolved]
  - Decreased appetite [Unknown]
